FAERS Safety Report 5086943-7 (Version None)
Quarter: 2006Q3

REPORT INFORMATION
  Report Type: 
  Country: None (occurrence: None)
  Receive Date: 20060818
  Receipt Date: 20060809
  Transmission Date: 20061208
  Serious: Yes (Other)
  Sender: FDA-Public Use
  Company Number: 2006097165

PATIENT
  Age: 42 Year
  Sex: Male
  Weight: 85.2762 kg

DRUGS (6)
  1. DEPO-PROVERA [Suspect]
     Indication: SEXUAL INHIBITION
     Dosage: SEE IMAGE
     Route: 030
     Dates: start: 20060629, end: 20060629
  2. DEPO-PROVERA [Suspect]
     Indication: SEXUAL INHIBITION
     Dosage: SEE IMAGE
     Route: 030
     Dates: start: 20060727, end: 20060727
  3. CHLORPROMAZINE [Concomitant]
  4. LITHIUM [Concomitant]
  5. FLUOXETINE [Concomitant]
  6. PROPRANOLOL [Concomitant]

REACTIONS (3)
  - DRUG EFFECT DECREASED [None]
  - EXCESSIVE SEXUAL FANTASIES [None]
  - LIBIDO INCREASED [None]
